FAERS Safety Report 5573764-1 (Version None)
Quarter: 2007Q4

REPORT INFORMATION
  Report Type: 
  Country: None (occurrence: None)
  Receive Date: 20071226
  Receipt Date: 20071221
  Transmission Date: 20080405
  Serious: Yes (Hospitalization)
  Sender: FDA-Public Use
  Company Number: JP-BRISTOL-MYERS SQUIBB COMPANY-14022644

PATIENT
  Age: 75 Year
  Sex: Male

DRUGS (7)
  1. REYATAZ [Suspect]
     Indication: HIV INFECTION
     Route: 048
     Dates: start: 20060725, end: 20060917
  2. NORVIR [Suspect]
     Indication: HIV INFECTION
     Route: 048
     Dates: start: 20060725, end: 20060917
  3. TRUVADA [Suspect]
     Indication: HIV INFECTION
     Route: 048
     Dates: start: 20060725, end: 20060803
  4. KALETRA [Suspect]
     Route: 048
     Dates: start: 20060918, end: 20060921
  5. BAKTAR [Suspect]
     Indication: ANTIVIRAL PROPHYLAXIS
     Route: 048
     Dates: start: 20060630, end: 20070725
  6. KLARICID [Suspect]
     Indication: ANTIVIRAL PROPHYLAXIS
     Route: 048
     Dates: start: 20060630, end: 20070725
  7. ZIAGEN [Concomitant]
     Route: 048
     Dates: start: 20060804, end: 20070921

REACTIONS (2)
  - ATRIOVENTRICULAR BLOCK COMPLETE [None]
  - RENAL DISORDER [None]
